FAERS Safety Report 5048224-7 (Version None)
Quarter: 2006Q2

REPORT INFORMATION
  Report Type: 
  Country: None (occurrence: None)
  Receive Date: 20060601
  Receipt Date: 20060217
  Transmission Date: 20061013
  Serious: No
  Sender: FDA-Public Use
  Company Number: 2006PV008849

PATIENT
  Age: 42 Year
  Sex: Female
  Weight: 106.5953 kg

DRUGS (3)
  1. BYETTA [Suspect]
     Indication: DIABETES MELLITUS NON-INSULIN-DEPENDENT
     Dosage: 5 MCG;BID;SC
     Route: 058
     Dates: start: 20060201
  2. BYETTA [Suspect]
  3. GLUCOTROL XL [Concomitant]

REACTIONS (6)
  - BLOOD GLUCOSE DECREASED [None]
  - DECREASED APPETITE [None]
  - EARLY SATIETY [None]
  - HEART RATE IRREGULAR [None]
  - NAUSEA [None]
  - VENTRICULAR EXTRASYSTOLES [None]
